FAERS Safety Report 8258889-4 (Version None)
Quarter: 2012Q2

REPORT INFORMATION
  Report Type: 
  Country: None (occurrence: None)
  Receive Date: 20120404
  Receipt Date: 20120402
  Transmission Date: 20120825
  Serious: Yes (Life-Threatening)
  Sender: FDA-Public Use
  Company Number: IT-ROCHE-1048224

PATIENT
  Sex: Female

DRUGS (5)
  1. TAXOTERE [Suspect]
     Indication: BREAST CANCER FEMALE
     Route: 042
     Dates: start: 20111222, end: 20111222
  2. LEVOTHYROXINE SODIUM [Concomitant]
     Route: 065
  3. XELODA [Suspect]
     Indication: BREAST CANCER FEMALE
     Route: 048
     Dates: start: 20111222, end: 20120104
  4. GRANULOKINE [Suspect]
     Indication: COLONY STIMULATING FACTOR PROPHYLAXIS
     Route: 058
     Dates: start: 20120103, end: 20120104
  5. ESOMEPRAZOLE [Concomitant]
     Route: 065

REACTIONS (4)
  - NEUTROPENIA [None]
  - STOMATITIS [None]
  - VAGINAL INFLAMMATION [None]
  - URTICARIA [None]
